FAERS Safety Report 9131644 (Version 3)
Quarter: 2013Q2

REPORT INFORMATION
  Report Type: Spontaneous
  Country: US (occurrence: US)
  Receive Date: 20130301
  Receipt Date: 20130410
  Transmission Date: 20140414
  Serious: Yes (Hospitalization, Other)
  Sender: FDA-Public Use
  Company Number: US-BAYER-2013-023008

PATIENT
  Age: 70 Year
  Sex: Male

DRUGS (2)
  1. CIPRO [Suspect]
     Indication: SINUSITIS
     Dosage: UNK
     Dates: start: 20121221, end: 20121222
  2. GENTAMICIN [Suspect]
     Indication: SINUSITIS
     Dosage: UNK
     Dates: start: 201212

REACTIONS (18)
  - Tendonitis [Not Recovered/Not Resolved]
  - Sinus disorder [None]
  - Sinus congestion [None]
  - Visual impairment [None]
  - Heart injury [Not Recovered/Not Resolved]
  - Weight increased [Not Recovered/Not Resolved]
  - Fluid retention [Not Recovered/Not Resolved]
  - Oedema [Not Recovered/Not Resolved]
  - Asthenia [Not Recovered/Not Resolved]
  - Arrhythmia [Not Recovered/Not Resolved]
  - Muscle atrophy [Not Recovered/Not Resolved]
  - Weight decreased [Not Recovered/Not Resolved]
  - Muscle swelling [Not Recovered/Not Resolved]
  - Pulmonary oedema [None]
  - Atrial fibrillation [None]
  - Liver injury [None]
  - Renal disorder [None]
  - Blood bilirubin increased [None]
